FAERS Safety Report 25605801 (Version 3)
Quarter: 2025Q3

REPORT INFORMATION
  Report Type: Spontaneous
  Country: US (occurrence: US)
  Receive Date: 20250725
  Receipt Date: 20250823
  Transmission Date: 20251020
  Serious: Yes (Other)
  Sender: SANOFI AVENTIS
  Company Number: US-SA-2025SA213997

PATIENT
  Age: 61 Year
  Sex: Female

DRUGS (1)
  1. DUPIXENT [Suspect]
     Active Substance: DUPILUMAB
     Indication: Nasal polyps
     Dosage: 300 MG, QOW
     Route: 058
     Dates: start: 202207

REACTIONS (7)
  - Ocular hypertension [Unknown]
  - Ocular discomfort [Unknown]
  - Eye pain [Unknown]
  - Vision blurred [Unknown]
  - Dizziness [Unknown]
  - Vertigo [Unknown]
  - Dry eye [Unknown]
